FAERS Safety Report 12809889 (Version 1)
Quarter: 2016Q4

REPORT INFORMATION
  Report Type: Spontaneous
  Country: US (occurrence: US)
  Receive Date: 20161005
  Receipt Date: 20161005
  Transmission Date: 20170207
  Serious: No
  Sender: FDA-Public Use
  Company Number: US-BEH-2016073936

PATIENT
  Age: 62 Year
  Sex: Female
  Weight: 68.27 kg

DRUGS (18)
  1. ALPRAZOLAM. [Concomitant]
     Active Substance: ALPRAZOLAM
  2. NEOSPORIN [Concomitant]
     Active Substance: BACITRACIN ZINC\NEOMYCIN SULFATE\POLYMYXIN B SULFATE
  3. DIPHENHYDRAMINE. [Concomitant]
     Active Substance: DIPHENHYDRAMINE
  4. PAXIL [Concomitant]
     Active Substance: PAROXETINE HYDROCHLORIDE
  5. SEROQUEL [Concomitant]
     Active Substance: QUETIAPINE FUMARATE
  6. LASIX [Concomitant]
     Active Substance: FUROSEMIDE
  7. HIZENTRA [Suspect]
     Active Substance: HUMAN IMMUNOGLOBULIN G
     Dosage: UNK
     Route: 058
  8. VITAMIN D                          /00107901/ [Concomitant]
     Active Substance: ERGOCALCIFEROL
  9. TOBRAMYCIN. [Concomitant]
     Active Substance: TOBRAMYCIN
  10. GLEEVEC [Concomitant]
     Active Substance: IMATINIB MESYLATE
  11. HIZENTRA [Suspect]
     Active Substance: HUMAN IMMUNOGLOBULIN G
     Indication: IMMUNODEFICIENCY COMMON VARIABLE
     Dosage: 15 G, EVERY 3 DAY
     Route: 058
  12. HIZENTRA [Suspect]
     Active Substance: HUMAN IMMUNOGLOBULIN G
     Dosage: UNK
     Route: 058
  13. LMX                                /00033401/ [Concomitant]
  14. GABAPENTIN. [Concomitant]
     Active Substance: GABAPENTIN
  15. CIPRO [Concomitant]
     Active Substance: CIPROFLOXACIN HYDROCHLORIDE
  16. GENTAMICIN. [Concomitant]
     Active Substance: GENTAMICIN
  17. EPINEPHRINE                        /00003902/ [Concomitant]
  18. BACTRIM [Concomitant]
     Active Substance: SULFAMETHOXAZOLE\TRIMETHOPRIM

REACTIONS (5)
  - Administration site warmth [Unknown]
  - Photophobia [Unknown]
  - Tinnitus [Unknown]
  - Headache [Unknown]
  - Administration site swelling [Unknown]
